FAERS Safety Report 8810367 (Version 6)
Quarter: 2014Q1

REPORT INFORMATION
  Report Type: Spontaneous
  Country: US (occurrence: US)
  Receive Date: 20120926
  Receipt Date: 20140102
  Transmission Date: 20141002
  Serious: Yes (Hospitalization, Disabling, Other)
  Sender: FDA-Public Use
  Company Number: US-009507513-1209USA007135

PATIENT
  Sex: Female
  Weight: 77.98 kg

DRUGS (6)
  1. FOSAMAX [Suspect]
     Indication: OSTEOPOROSIS
     Dosage: 10 MG, UNK
     Route: 048
     Dates: start: 19960328, end: 20011126
  2. FOSAMAX [Suspect]
     Indication: RHEUMATOID ARTHRITIS
     Dosage: 70 MG, QW
     Route: 048
     Dates: start: 20011127, end: 200606
  3. FOSAMAX [Suspect]
     Dosage: 5 MG, QD
     Route: 048
  4. PREDNISONE [Concomitant]
     Indication: RHEUMATOID ARTHRITIS
     Dosage: 5 MG, BID
  5. CALCIUM (UNSPECIFIED) [Concomitant]
     Indication: OSTEOPOROSIS
     Dosage: UNK
     Dates: start: 199910
  6. VITAMIN D (UNSPECIFIED) [Concomitant]
     Indication: OSTEOPOROSIS
     Dosage: UNK
     Dates: start: 199910

REACTIONS (77)
  - Intramedullary rod insertion [Unknown]
  - Intramedullary rod insertion [Unknown]
  - Hip fracture [Unknown]
  - Cholecystectomy [Unknown]
  - Skin graft [Unknown]
  - Bunion operation [Unknown]
  - Knee arthroplasty [Unknown]
  - Device failure [Unknown]
  - Toe operation [Unknown]
  - Foot operation [Unknown]
  - Knee arthroplasty [Unknown]
  - Cellulitis [Unknown]
  - Medical device removal [Unknown]
  - Adverse drug reaction [Unknown]
  - Phlebitis [Unknown]
  - Hypertension [Unknown]
  - Debridement [Unknown]
  - Cellulitis [Unknown]
  - Dehydration [Unknown]
  - Postoperative fever [Unknown]
  - Pyrexia [Unknown]
  - Nausea [Unknown]
  - Vomiting [Unknown]
  - Femur fracture [Recovered/Resolved]
  - Femur fracture [Unknown]
  - Cellulitis [Unknown]
  - Skin ulcer [Unknown]
  - Rib fracture [Unknown]
  - Upper limb fracture [Unknown]
  - Debridement [Unknown]
  - Foot fracture [Unknown]
  - Upper limb fracture [Unknown]
  - Bone atrophy [Unknown]
  - Bursitis [Unknown]
  - Tooth abscess [Unknown]
  - Hypothyroidism [Not Recovered/Not Resolved]
  - VIIth nerve paralysis [Unknown]
  - Osteoarthritis [Unknown]
  - Fall [Unknown]
  - Foot deformity [Unknown]
  - Lumbar radiculopathy [Unknown]
  - Adverse drug reaction [Unknown]
  - Pneumonia [Unknown]
  - Hypertrichosis [Unknown]
  - Foot operation [Unknown]
  - Urinary tract infection [Unknown]
  - Fungal infection [Unknown]
  - Vitamin D deficiency [Unknown]
  - Calcium deficiency [Unknown]
  - Infection [Unknown]
  - Cough [Unknown]
  - Pain [Unknown]
  - Adverse drug reaction [Unknown]
  - Iron deficiency [Unknown]
  - Lower limb fracture [Unknown]
  - Medical device removal [Unknown]
  - Osteoarthritis [Unknown]
  - Hypoxia [Recovered/Resolved]
  - Excoriation [Unknown]
  - Insomnia [Unknown]
  - Dyspnoea [Unknown]
  - Sinusitis [Unknown]
  - Bronchitis [Unknown]
  - Stress urinary incontinence [Unknown]
  - Fibrocystic breast disease [Unknown]
  - Scar [Unknown]
  - Osteopenia [Unknown]
  - Muscle strain [Recovering/Resolving]
  - Rheumatic fever [Unknown]
  - Dyspepsia [Unknown]
  - Arthralgia [Not Recovered/Not Resolved]
  - Off label use [Unknown]
  - Headache [Unknown]
  - Musculoskeletal discomfort [Unknown]
  - Arthralgia [Unknown]
  - Arthralgia [Unknown]
  - Joint swelling [Unknown]
